FAERS Safety Report 4498135-0 (Version None)
Quarter: 2004Q4

REPORT INFORMATION
  Report Type: 
  Country: None (occurrence: None)
  Receive Date: 20041110
  Receipt Date: 20041103
  Transmission Date: 20050328
  Serious: Yes (Disabling)
  Sender: FDA-Public Use
  Company Number: US-MERCK-0411USA00566

PATIENT
  Sex: Female

DRUGS (3)
  1. ZETIA [Suspect]
     Indication: BLOOD CHOLESTEROL INCREASED
     Route: 048
  2. VASOTEC [Concomitant]
     Route: 048
  3. HYDRODIURIL [Concomitant]
     Route: 048

REACTIONS (5)
  - ARTHRALGIA [None]
  - BACK PAIN [None]
  - NECK PAIN [None]
  - OEDEMA PERIPHERAL [None]
  - TENDERNESS [None]
